FAERS Safety Report 9013084 (Version 11)
Quarter: 2013Q4

REPORT INFORMATION
  Report Type: Report from Study
  Country: TW (occurrence: TW)
  Receive Date: 20130115
  Receipt Date: 20131212
  Transmission Date: 20140711
  Serious: Yes (Hospitalization)
  Sender: FDA-Public Use
  Company Number: TW-009507513-1301TWN004739

PATIENT
  Age: 45 Year
  Sex: Male
  Weight: 88 kg

DRUGS (14)
  1. BOCEPREVIR [Suspect]
     Indication: HEPATITIS C
     Dosage: 200 MG, TID
     Route: 048
     Dates: start: 20120827
  2. BOCEPREVIR [Suspect]
     Dosage: 200 MG, TID
     Route: 048
     Dates: start: 20130119, end: 20130410
  3. PEG-INTRON [Suspect]
     Indication: HEPATITIS C
     Dosage: 120 MICROGRAM, QW
     Route: 030
     Dates: start: 20120730
  4. PEG-INTRON [Suspect]
     Dosage: 120 MICROGRAM, QW
     Route: 030
     Dates: start: 20130119, end: 20130404
  5. RIBAVIRIN [Suspect]
     Indication: HEPATITIS C
     Dosage: 200 MG, BID
     Route: 048
     Dates: start: 20120730
  6. RIBAVIRIN [Suspect]
     Dosage: 200 MG, QD
     Route: 048
     Dates: start: 20130119, end: 20130410
  7. CONCOR [Concomitant]
     Indication: HYPERTENSION
     Dosage: 5 MG, QD
     Route: 048
     Dates: start: 20100531
  8. VALSARTAN [Concomitant]
     Indication: HYPERTENSION
     Dosage: 80 MG, QD
     Route: 048
     Dates: start: 20100531
  9. JANUVIA 100MG [Concomitant]
     Dosage: 100 MG, QD
     Route: 048
     Dates: start: 20120109
  10. AMARYL [Concomitant]
     Indication: DIABETES MELLITUS
     Dosage: 2 MG, QD
     Route: 048
     Dates: start: 20110411
  11. SILYMARIN [Concomitant]
     Indication: HEPATIC CIRRHOSIS
     Dosage: 150 MG, BID
     Route: 048
     Dates: start: 20120514
  12. FAMOTIDINE [Concomitant]
     Indication: GASTRITIS
     Dosage: 20 MG, BID
     Route: 048
     Dates: start: 20121217
  13. LASIX (FUROSEMIDE) [Concomitant]
     Indication: HEPATIC CIRRHOSIS
     Dosage: 40 MG, QD
     Route: 048
     Dates: start: 20121022
  14. ALDACTONE TABLETS [Concomitant]
     Indication: HEPATIC CIRRHOSIS
     Dosage: 25 MG, BID
     Dates: start: 20121119

REACTIONS (2)
  - Anaemia [Recovered/Resolved]
  - Calculus bladder [Recovered/Resolved]
